FAERS Safety Report 5391527-7 (Version None)
Quarter: 2007Q3

REPORT INFORMATION
  Report Type: 
  Country: None (occurrence: None)
  Receive Date: 20070719
  Receipt Date: 20070710
  Transmission Date: 20080115
  Serious: Yes (Hospitalization)
  Sender: FDA-Public Use
  Company Number: US-AMGEN-STX233540

PATIENT
  Sex: Male

DRUGS (1)
  1. ENBREL [Suspect]
     Route: 058
     Dates: start: 20070610

REACTIONS (2)
  - PHARYNGOLARYNGEAL PAIN [None]
  - RHINORRHOEA [None]
